FAERS Safety Report 9288142 (Version 1)
Quarter: 2013Q2

REPORT INFORMATION
  Report Type: Spontaneous
  Country: US (occurrence: US)
  Receive Date: 20130514
  Receipt Date: 20130514
  Transmission Date: 20140414
  Serious: Yes (Other)
  Sender: FDA-Public Use
  Company Number: US-JNJFOC-20130501523

PATIENT
  Age: 41 Year
  Sex: Female
  Weight: 65.32 kg

DRUGS (2)
  1. XARELTO [Suspect]
     Indication: THROMBOSIS
     Route: 048
     Dates: start: 2013
  2. POTASSIUM SUPPLEMENTS [Concomitant]
     Indication: BLOOD POTASSIUM DECREASED
     Route: 065

REACTIONS (3)
  - International normalised ratio increased [Recovering/Resolving]
  - Hypokalaemia [Unknown]
  - Drug dose omission [Unknown]
